FAERS Safety Report 5903793-7 (Version None)
Quarter: 2008Q3

REPORT INFORMATION
  Report Type: 
  Country: None (occurrence: None)
  Receive Date: 20080930
  Receipt Date: 20080923
  Transmission Date: 20090109
  Serious: Yes (Disabling)
  Sender: FDA-Public Use
  Company Number: GB-AMGEN-US291220

PATIENT
  Sex: Male
  Weight: 76 kg

DRUGS (14)
  1. ENBREL [Suspect]
     Indication: RHEUMATOID ARTHRITIS
     Route: 058
     Dates: start: 20030604, end: 20080215
  2. AMIODARONE [Suspect]
     Route: 065
  3. PREDNISOLONE [Concomitant]
     Dosage: 30 MG DAILY REDUCING BY 5 MG EACH WEEK UNTIL 15 MG MAINTENANCE DOSE REACHED
     Route: 065
  4. ACETYLSALICYLIC ACID SRT [Concomitant]
     Route: 065
  5. BENDROFLUMETHIAZIDE [Concomitant]
     Dosage: UNKNOWN
     Route: 065
  6. CALCIUM CARBONATE [Concomitant]
     Route: 065
  7. BISOPROLOL FUMARATE [Concomitant]
     Route: 065
  8. OMEPRAZOLE [Concomitant]
     Route: 065
  9. NAPRATEC [Concomitant]
     Dosage: 500 MG TWICE DAILY OR AS REQUIRED
     Route: 065
  10. PRAVASTATIN [Concomitant]
     Dosage: UNKNOWN
     Route: 065
  11. SOTALOL [Concomitant]
     Dosage: UNKNOWN
     Route: 065
  12. FOSAMAX [Concomitant]
     Route: 065
  13. METHOTREXATE [Concomitant]
     Route: 065
  14. FOLIC ACID [Concomitant]
     Route: 065

REACTIONS (2)
  - MOTOR DYSFUNCTION [None]
  - VASCULITIS [None]
